FAERS Safety Report 5625750-0 (Version None)
Quarter: 2008Q1

REPORT INFORMATION
  Report Type: 
  Country: None (occurrence: None)
  Receive Date: 20080214
  Receipt Date: 20080211
  Transmission Date: 20080703
  Serious: Yes (Death)
  Sender: FDA-Public Use
  Company Number: ES-BRISTOL-MYERS SQUIBB COMPANY-14053599

PATIENT
  Age: 47 Year
  Sex: Male

DRUGS (3)
  1. SUSTIVA CAPS 50 MG [Suspect]
     Indication: HIV INFECTION
     Dosage: 1 DOSAGE FORM = 30 HARD CAPSULES
     Route: 048
     Dates: start: 20070914, end: 20071212
  2. TRUVADA [Suspect]
     Indication: HIV INFECTION
     Dosage: 1 DOSAGE FORM = 200MG/245MG, 30 TABLETS;1 FD
     Route: 048
     Dates: start: 20070914, end: 20071212
  3. SEPTRIN FORTE [Suspect]
     Indication: HIV INFECTION
     Dosage: 1 DOSAGE FORM = 20 TABLETS;3 FD
     Route: 048
     Dates: start: 20070601, end: 20071212

REACTIONS (2)
  - AGRANULOCYTOSIS [None]
  - LACTIC ACIDOSIS [None]
